FAERS Safety Report 8958494 (Version 1)
Quarter: 2012Q4

REPORT INFORMATION
  Report Type: Spontaneous
  Country: US (occurrence: None)
  Receive Date: 20121205
  Receipt Date: 20121205
  Transmission Date: 20130627
  Serious: No
  Sender: FDA-Public Use
  Company Number: None

PATIENT

DRUGS (1)
  1. AMLODIPINE BESYLATE [Suspect]

REACTIONS (2)
  - Loss of consciousness [None]
  - Nail discolouration [None]
